FAERS Safety Report 7240656-1 (Version None)
Quarter: 2011Q1

REPORT INFORMATION
  Report Type: 
  Country: None (occurrence: None)
  Receive Date: 20110124
  Receipt Date: 20101104
  Transmission Date: 20110831
  Serious: No
  Sender: FDA-Public Use
  Company Number: US-KINGPHARMUSA00001-K201001360

PATIENT
  Sex: Female
  Weight: 10.884 kg

DRUGS (1)
  1. EPIPEN JR. [Suspect]
     Dosage: 0.15 MG, SINGLE
     Route: 030
     Dates: start: 20101102, end: 20101102

REACTIONS (1)
  - DRUG INEFFECTIVE [None]
